FAERS Safety Report 6030230-7 (Version None)
Quarter: 2009Q1

REPORT INFORMATION
  Report Type: 
  Country: None (occurrence: None)
  Receive Date: 20090107
  Receipt Date: 20080904
  Transmission Date: 20090719
  Serious: No
  Sender: FDA-Public Use
  Company Number: US-BAYER-200813646BCC

PATIENT
  Sex: Female

DRUGS (1)
  1. ALEVE [Suspect]
     Indication: JOINT SPRAIN
     Dosage: UNIT DOSE: 220 MG
     Dates: start: 20080901

REACTIONS (1)
  - JOINT SPRAIN [None]
